FAERS Safety Report 12587793 (Version 1)
Quarter: 2016Q3

REPORT INFORMATION
  Report Type: Spontaneous
  Country: AU (occurrence: AU)
  Receive Date: 20160725
  Receipt Date: 20160725
  Transmission Date: 20161109
  Serious: Yes (Death, Hospitalization)
  Sender: FDA-Public Use
  Company Number: AU-PFIZER INC-2016357522

PATIENT
  Age: 15 Year
  Sex: Male

DRUGS (1)
  1. EPIPEN [Suspect]
     Active Substance: EPINEPHRINE
     Indication: HYPERSENSITIVITY
     Dosage: UNK
     Dates: start: 20160711, end: 20160711

REACTIONS (2)
  - Coma [Unknown]
  - Death [Fatal]

NARRATIVE: CASE EVENT DATE: 20160711
